FAERS Safety Report 21310285 (Version 2)
Quarter: 2022Q4

REPORT INFORMATION
  Report Type: Spontaneous
  Country: US (occurrence: US)
  Receive Date: 20220909
  Receipt Date: 20221011
  Transmission Date: 20230112
  Serious: Yes (Hospitalization)
  Sender: FDA-Public Use
  Company Number: US-ROCHE-2354013

PATIENT
  Sex: Female
  Weight: 97.610 kg

DRUGS (9)
  1. CLONAZEPAM [Suspect]
     Active Substance: CLONAZEPAM
     Indication: Anxiety
     Dosage: ONGOING: YES?TAKE 1 MG TWICE A DAY AND 2 MG AT A BEDTIME?DAILY DOSE: 2 MILLIGRAM
     Route: 048
     Dates: start: 2014
  2. OCREVUS [Suspect]
     Active Substance: OCRELIZUMAB
     Indication: Relapsing multiple sclerosis
     Dosage: UNKNOWN?3/JUL/2019, 4/JAN/2019, RECEIVED HER LAST DOSE OF OCELIZUMAB
     Dates: start: 20171220
  3. OCREVUS [Suspect]
     Active Substance: OCRELIZUMAB
     Indication: Relapsing multiple sclerosis
     Route: 042
     Dates: start: 2018
  4. OCREVUS [Suspect]
     Active Substance: OCRELIZUMAB
     Indication: Relapsing multiple sclerosis
     Dosage: ONGOING: NO
     Dates: start: 20180104
  5. OCREVUS [Suspect]
     Active Substance: OCRELIZUMAB
     Indication: Relapsing multiple sclerosis
     Dates: start: 202203
  6. LYRICA [Suspect]
     Active Substance: PREGABALIN
     Indication: Sciatica
     Dosage: ONGOING: YES?3 TIMES IN 1 DAY
     Route: 048
  7. VOLTAREN [Concomitant]
     Active Substance: DICLOFENAC SODIUM
     Indication: Sciatica
     Dosage: ONGOING: UNKNOWN
  8. ZOLOFT [Concomitant]
     Active Substance: SERTRALINE HYDROCHLORIDE
     Indication: Depression
     Dates: start: 1995
  9. PANTOPRAZOLE [Concomitant]
     Active Substance: PANTOPRAZOLE
     Indication: Gastrooesophageal reflux disease
     Route: 048

REACTIONS (14)
  - Intervertebral disc protrusion [Not Recovered/Not Resolved]
  - Sensory loss [Unknown]
  - Sensory disturbance [Not Recovered/Not Resolved]
  - Burning sensation [Not Recovered/Not Resolved]
  - Joint swelling [Not Recovered/Not Resolved]
  - Visual field defect [Unknown]
  - White blood cell count decreased [Unknown]
  - Sciatica [Unknown]
  - Attention deficit hyperactivity disorder [Unknown]
  - COVID-19 [Not Recovered/Not Resolved]
  - Coma [Recovered/Resolved]
  - Eye pain [Unknown]
  - Memory impairment [Not Recovered/Not Resolved]
  - Weight increased [Not Recovered/Not Resolved]

NARRATIVE: CASE EVENT DATE: 20140101
